FAERS Safety Report 5326002-9 (Version None)
Quarter: 2007Q2

REPORT INFORMATION
  Report Type: 
  Country: None (occurrence: None)
  Receive Date: 20070516
  Receipt Date: 20070504
  Transmission Date: 20071010
  Serious: Yes (Other)
  Sender: FDA-Public Use
  Company Number: BE-JNJFOC-20070501728

PATIENT
  Age: 72 Year
  Sex: Female

DRUGS (3)
  1. INFLIXIMAB [Suspect]
     Indication: INFLAMMATORY BOWEL DISEASE
     Route: 042
  2. CYCLOSPORINE [Concomitant]
  3. AZATHIOPRINE [Concomitant]

REACTIONS (3)
  - BASAL CELL CARCINOMA [None]
  - BREAST CANCER METASTATIC [None]
  - METASTASES TO BONE [None]
